FAERS Safety Report 16566936 (Version 2)
Quarter: 2019Q3

REPORT INFORMATION
  Report Type: Spontaneous
  Country: US (occurrence: US)
  Receive Date: 20190712
  Receipt Date: 20190816
  Transmission Date: 20191004
  Serious: Yes (Hospitalization)
  Sender: FDA-Public Use
  Company Number: US-PFIZER INC-2019298437

PATIENT
  Age: 80 Year
  Sex: Male

DRUGS (1)
  1. TAFAMIDIS [Suspect]
     Active Substance: TAFAMIDIS MEGLUMINE
     Dosage: 61 MG, UNK

REACTIONS (6)
  - Hemiparesis [Unknown]
  - Cardiac failure [Unknown]
  - Decreased appetite [Unknown]
  - Cerebrovascular accident [Unknown]
  - Fatigue [Unknown]
  - Dyspnoea [Unknown]
